FAERS Safety Report 14707277 (Version 1)
Quarter: 2018Q2

REPORT INFORMATION
  Report Type: Spontaneous
  Country: IT (occurrence: IT)
  Receive Date: 20180403
  Receipt Date: 20180403
  Transmission Date: 20180711
  Serious: Yes (Other)
  Sender: FDA-Public Use
  Company Number: IT-ACCORD-065350

PATIENT
  Age: 47 Year
  Sex: Female

DRUGS (1)
  1. ARIPIPRAZOLE. [Suspect]
     Active Substance: ARIPIPRAZOLE
     Indication: MAJOR DEPRESSION
     Dosage: THERAPEUTIC DOSE OF 15 MG DAILY
     Dates: start: 2016

REACTIONS (2)
  - Off label use [Unknown]
  - Alice in wonderland syndrome [Unknown]
